FAERS Safety Report 7484301-9 (Version None)
Quarter: 2011Q2

REPORT INFORMATION
  Report Type: 
  Country: None (occurrence: None)
  Receive Date: 20110513
  Receipt Date: 20110513
  Transmission Date: 20111010
  Serious: Yes (Hospitalization)
  Sender: FDA-Public Use
  Company Number: None

PATIENT
  Age: 58 Year
  Sex: Female
  Weight: 68.0396 kg

DRUGS (3)
  1. SODIUM ACETATE [Suspect]
     Indication: SHORT-BOWEL SYNDROME
  2. SODIUM ACETATE [Suspect]
     Indication: MALABSORPTION
  3. TPN [Suspect]

REACTIONS (8)
  - PAIN [None]
  - PRURITUS GENERALISED [None]
  - ARTHRALGIA [None]
  - FEELING HOT [None]
  - GAIT DISTURBANCE [None]
  - ASTHENIA [None]
  - RENAL DISORDER [None]
  - ABASIA [None]
